FAERS Safety Report 11498163 (Version 3)
Quarter: 2015Q3

REPORT INFORMATION
  Report Type: Report from Study
  Country: CH (occurrence: CH)
  Receive Date: 20150911
  Receipt Date: 20150924
  Transmission Date: 20151125
  Serious: Yes (Other)
  Sender: FDA-Public Use
  Company Number: CH-BAXTER-2015BAX049449

PATIENT

DRUGS (1)
  1. SEVOFLURANE BAXTER [Suspect]
     Active Substance: SEVOFLURANE
     Indication: POSTOPERATIVE CARE
     Route: 055

REACTIONS (2)
  - Cardiac failure congestive [Unknown]
  - Arrhythmia [Unknown]
